FAERS Safety Report 4385828-9 (Version None)
Quarter: 2004Q2

REPORT INFORMATION
  Report Type: 
  Country: None (occurrence: None)
  Receive Date: 20040628
  Receipt Date: 20040616
  Transmission Date: 20050107
  Serious: Yes (Hospitalization)
  Sender: FDA-Public Use
  Company Number: JP-ROCHE-371583

PATIENT
  Age: 59 Year
  Sex: Female
  Weight: 55.2 kg

DRUGS (9)
  1. PEG-INTERFERON A-2A (RO 25-8310) [Suspect]
     Route: 058
     Dates: start: 20040225, end: 20040302
  2. PEG-INTERFERON A-2A (RO 25-8310) [Suspect]
     Route: 058
     Dates: start: 20040303
  3. LANSOPRAZOLE [Concomitant]
     Indication: DRUG USE FOR UNKNOWN INDICATION
     Route: 048
     Dates: start: 20030601
  4. ACECOL [Concomitant]
     Indication: DRUG USE FOR UNKNOWN INDICATION
     Dosage: TAKEN FROM BEFORE START OF PEG-INTERFERON ALFA-2A.
     Route: 048
  5. ESTRADERM [Concomitant]
     Indication: DRUG USE FOR UNKNOWN INDICATION
     Dosage: TAKEN FROM BEFORE START OF PEG-INTERFERON ALFA-2A.
     Route: 062
  6. ROHYPNOL [Concomitant]
     Indication: DRUG USE FOR UNKNOWN INDICATION
     Dosage: TAKEN FROM BEFORE START OF PEG-INTERFERON ALFA-2A.
     Route: 048
  7. GASMOTIN [Concomitant]
     Dosage: TAKEN FROM BEFORE START OF PEG-INTERFERON ALFA-2A.
     Route: 048
  8. PHENOBAL [Concomitant]
     Dosage: TAKEN FROM BEFORE START OF PEG-INTERFERON ALFA-2A.
     Route: 048
  9. DIAZEPAM [Concomitant]
     Dosage: TAKEN FROM BEFORE START OF PEG-INTERFERON ALFA-2A.
     Route: 048

REACTIONS (3)
  - ANHIDROSIS [None]
  - MALAISE [None]
  - PYREXIA [None]
